FAERS Safety Report 5504421-5 (Version None)
Quarter: 2007Q4

REPORT INFORMATION
  Report Type: 
  Country: None (occurrence: None)
  Receive Date: 20071101
  Receipt Date: 20071024
  Transmission Date: 20080405
  Serious: Yes (Hospitalization)
  Sender: FDA-Public Use
  Company Number: US-ABBOTT-07P-163-0422057-00

PATIENT
  Sex: Male
  Weight: 109 kg

DRUGS (3)
  1. HUMIRA [Suspect]
     Indication: PSORIATIC ARTHROPATHY
     Route: 058
     Dates: start: 20050101, end: 20070401
  2. ALPRAZOLAM [Concomitant]
     Indication: STRESS
     Dates: start: 20070509, end: 20070512
  3. AMIODARONE HCL [Concomitant]
     Indication: CARDIOVASCULAR EVENT PROPHYLAXIS
     Route: 048
     Dates: start: 20070501, end: 20071022

REACTIONS (3)
  - ASTHENIA [None]
  - CARDIAC FAILURE ACUTE [None]
  - LOSS OF CONSCIOUSNESS [None]
